FAERS Safety Report 8263957-7 (Version None)
Quarter: 2012Q2

REPORT INFORMATION
  Report Type: 
  Country: None (occurrence: None)
  Receive Date: 20120406
  Receipt Date: 20120327
  Transmission Date: 20120825
  Serious: Yes (Hospitalization, Other)
  Sender: FDA-Public Use
  Company Number: US-BIOGENIDEC-2011BI044131

PATIENT
  Sex: Female
  Weight: 117 kg

DRUGS (18)
  1. AVONEX [Suspect]
     Route: 030
     Dates: start: 20011207
  2. PRAVASTATIN [Concomitant]
  3. MULTIPLE VITAMIN/ MULTI MINERAL [Concomitant]
  4. FUROSEMIDE [Concomitant]
  5. ZOLOFT [Concomitant]
  6. FOLIC ACID [Concomitant]
  7. LEFLUNOMIDE [Concomitant]
  8. ROPINIROLE [Concomitant]
  9. LYRICA [Concomitant]
  10. OMEPRAZOLE [Concomitant]
  11. AVONEX [Suspect]
     Indication: MULTIPLE SCLEROSIS
     Route: 030
     Dates: start: 20001201
  12. MELOXICAM [Concomitant]
  13. OXYBUTYNIN [Concomitant]
  14. BACLOFEN [Concomitant]
  15. SPIRONOLACTONE [Concomitant]
  16. BENAZEPRIL HYDROCHLORIDE [Concomitant]
  17. CARVEDILOL [Concomitant]
  18. METHOTHEXATE [Concomitant]

REACTIONS (4)
  - CARDIAC FAILURE CONGESTIVE [None]
  - CARDIOMYOPATHY [None]
  - KNEE ARTHROPLASTY [None]
  - CHRONIC OBSTRUCTIVE PULMONARY DISEASE [None]
